FAERS Safety Report 7694392-8 (Version None)
Quarter: 2011Q3

REPORT INFORMATION
  Report Type: 
  Country: None (occurrence: None)
  Receive Date: 20110819
  Receipt Date: 20110809
  Transmission Date: 20111222
  Serious: Yes (Death, Hospitalization)
  Sender: FDA-Public Use
  Company Number: IL-BRISTOL-MYERS SQUIBB COMPANY-15920960

PATIENT
  Age: 73 Year
  Sex: Female

DRUGS (2)
  1. CODEINE SULFATE [Suspect]
     Dosage: FORMULATION:TABS
  2. IPILIMUMAB [Suspect]
     Indication: MALIGNANT MELANOMA
     Route: 042
     Dates: start: 20110428

REACTIONS (1)
  - STEVENS-JOHNSON SYNDROME [None]
